FAERS Safety Report 8282702-2 (Version None)
Quarter: 2012Q2

REPORT INFORMATION
  Report Type: 
  Country: None (occurrence: None)
  Receive Date: 20120413
  Receipt Date: 20120404
  Transmission Date: 20120825
  Serious: Yes (Other)
  Sender: FDA-Public Use
  Company Number: US-AMGEN-USASP2011036693

PATIENT
  Age: 51 Year
  Sex: Male
  Weight: 80.27 kg

DRUGS (18)
  1. PEGASYS [Concomitant]
     Indication: HEPATITIS C
     Dosage: 90 MUG, QWK
     Route: 058
     Dates: start: 20100210
  2. PROCRIT [Suspect]
     Dosage: 40000 IU, Q2WK
     Route: 058
     Dates: start: 20100101, end: 20100101
  3. RIBAVIRIN [Concomitant]
     Dosage: UNK
     Dates: end: 20110225
  4. NORVASC [Concomitant]
     Dosage: 5 MG, QD
  5. ANTIHYPERTENSIVES [Concomitant]
  6. PROCRIT [Suspect]
     Dosage: 20000 IU, 2 TIMES/WK
     Dates: end: 20110223
  7. LISINOPRIL [Concomitant]
     Dosage: 10 MG, UNK
  8. PROCRIT [Suspect]
     Indication: HAEMOLYTIC ANAEMIA
     Dosage: 40000 IU, QWK
     Route: 058
     Dates: start: 20100101, end: 20100924
  9. PROCRIT [Suspect]
     Dosage: 40000 IU, Q2WK
     Route: 058
     Dates: start: 20101122
  10. TESTOSTERONE [Concomitant]
     Dosage: UNK
  11. FOLIC ACID [Concomitant]
     Dosage: 1 MG, QD
  12. PEGASYS [Concomitant]
     Dosage: UNK
     Dates: end: 20110225
  13. COMPAZINE [Concomitant]
  14. MULTIVITAMIN                       /00097801/ [Concomitant]
     Dosage: UNK
  15. PROCRIT [Suspect]
     Dosage: 20000 IU, UNK
     Route: 058
     Dates: start: 20100928, end: 20110223
  16. RIBAVIRIN [Concomitant]
     Indication: HEPATITIS C
     Dosage: 600 MG, QD
     Dates: start: 20100101
  17. METHADONE HCL [Concomitant]
     Dosage: 60 MG, BID
  18. ATENOLOL [Concomitant]
     Dosage: 12.5 MG, QD
     Route: 048

REACTIONS (31)
  - PAIN [None]
  - ACTIVITIES OF DAILY LIVING IMPAIRED [None]
  - DISCOMFORT [None]
  - CARDIAC MURMUR [None]
  - RASH ERYTHEMATOUS [None]
  - NERVOUS SYSTEM DISORDER [None]
  - WEIGHT DECREASED [None]
  - DRY MOUTH [None]
  - INJECTION SITE PAIN [None]
  - INJURY [None]
  - HAEMOLYTIC ANAEMIA [None]
  - LIVER DISORDER [None]
  - DYSPNOEA [None]
  - NAUSEA [None]
  - BIOPSY [None]
  - MOUTH ULCERATION [None]
  - DECREASED APPETITE [None]
  - HYPERTENSION [None]
  - PRURITUS [None]
  - RASH [None]
  - PAIN IN EXTREMITY [None]
  - SKIN EXFOLIATION [None]
  - ANAEMIA [None]
  - FATIGUE [None]
  - OEDEMA PERIPHERAL [None]
  - FOLLICULITIS [None]
  - HYPERHIDROSIS [None]
  - HEADACHE [None]
  - PULMONARY CONGESTION [None]
  - STRESS [None]
  - SKIN BURNING SENSATION [None]
